FAERS Safety Report 10563275 (Version 2)
Quarter: 2015Q2

REPORT INFORMATION
  Report Type: Spontaneous
  Country: US (occurrence: US)
  Receive Date: 20141104
  Receipt Date: 20150422
  Transmission Date: 20150821
  Serious: No
  Sender: FDA-Public Use
  Company Number: US-PFIZER INC-2014302644

PATIENT
  Age: 36 Year
  Sex: Male

DRUGS (2)
  1. MORPHINE SULFATE. [Suspect]
     Active Substance: MORPHINE SULFATE
     Indication: PAIN
     Dosage: UNK
     Dates: start: 1998
  2. HYDREA [Suspect]
     Active Substance: HYDROXYUREA
     Indication: NON-HODGKIN^S LYMPHOMA
     Dosage: UNK UNK, 1X/DAY
     Dates: start: 2010, end: 2010

REACTIONS (1)
  - Drug hypersensitivity [Recovered/Resolved]

NARRATIVE: CASE EVENT DATE: 1998
